FAERS Safety Report 6745694-0 (Version None)
Quarter: 2010Q2

REPORT INFORMATION
  Report Type: 
  Country: None (occurrence: None)
  Receive Date: 20100528
  Receipt Date: 20100521
  Transmission Date: 20101027
  Serious: Yes (Hospitalization)
  Sender: FDA-Public Use
  Company Number: ES-B.I. PHARMACEUTICALS,INC./RIDGEFIELD-2010-BP-05926YA

PATIENT
  Age: 73 Year
  Sex: Male

DRUGS (6)
  1. TAMSULOSIN HCL [Suspect]
     Dosage: 0.4 MG
     Route: 048
     Dates: end: 20081027
  2. SEROQUEL [Suspect]
     Dosage: 600 MG
     Route: 048
  3. EMCONCOR (BISOPROLOL) [Suspect]
     Indication: ISCHAEMIC CARDIOMYOPATHY
     Dosage: 5 MG
     Route: 048
     Dates: start: 20080925, end: 20081026
  4. CLOPIDOGREL [Concomitant]
     Indication: ISCHAEMIC CARDIOMYOPATHY
     Dosage: 75 MG
     Route: 048
     Dates: start: 20080925, end: 20081027
  5. ASPIRIN [Concomitant]
     Indication: ISCHAEMIC CARDIOMYOPATHY
     Dosage: 100 MG
     Route: 048
     Dates: start: 20080925
  6. DIAFUSOR (GLYCERYL TRINITRATE) [Concomitant]
     Indication: ISCHAEMIC CARDIOMYOPATHY
     Dosage: 10 MG
     Route: 062
     Dates: start: 20080925

REACTIONS (2)
  - DRUG INTERACTION [None]
  - SYNCOPE [None]
